FAERS Safety Report 7225924 (Version 8)
Quarter: 2015Q4

REPORT INFORMATION
  Report Type: Spontaneous
  Country: US (occurrence: US)
  Receive Date: 20091222
  Receipt Date: 20151215
  Transmission Date: 20160305
  Serious: Yes (Hospitalization, Other)
  Sender: FDA-Public Use
  Company Number: US-BAYER-200942919NA

PATIENT
  Age: 18 Year
  Sex: Female
  Weight: 82 kg

DRUGS (2)
  1. YASMIN [Suspect]
     Active Substance: DROSPIRENONE\ETHINYL ESTRADIOL
     Route: 048
     Dates: start: 20081229, end: 20090703
  2. YAZ [Suspect]
     Active Substance: DROSPIRENONE\ETHINYL ESTRADIOL
     Route: 048

REACTIONS (13)
  - Cerebrovascular accident [None]
  - Embolic stroke [None]
  - Cerebral thrombosis [None]
  - Paraesthesia [None]
  - Hypoaesthesia [None]
  - Aphasia [None]
  - Embolism arterial [None]
  - Pain in extremity [None]
  - Brain oedema [None]
  - Hemiplegia [None]
  - Muscular weakness [None]
  - Clonus [None]
  - Headache [None]

NARRATIVE: CASE EVENT DATE: 20090703
